FAERS Safety Report 9335494 (Version 1)
Quarter: 2013Q2

REPORT INFORMATION
  Report Type: Spontaneous
  Country: US (occurrence: US)
  Receive Date: 20130607
  Receipt Date: 20130607
  Transmission Date: 20140414
  Serious: No
  Sender: FDA-Public Use
  Company Number: US-009507513-1305USA017468

PATIENT
  Age: 9 Year
  Sex: Female
  Weight: 57.6 kg

DRUGS (2)
  1. CLARITIN ORAL SOLUTION [Suspect]
     Indication: SEASONAL ALLERGY
     Dosage: 10 MG, QD
     Route: 048
  2. CLARITIN ORAL SOLUTION [Suspect]
     Dosage: 30 MG, QD
     Route: 048
     Dates: start: 20130520

REACTIONS (1)
  - Accidental overdose [Recovering/Resolving]
